FAERS Safety Report 15123215 (Version 1)
Quarter: 2018Q3

REPORT INFORMATION
  Report Type: Spontaneous
  Country: IL (occurrence: IL)
  Receive Date: 20180709
  Receipt Date: 20180709
  Transmission Date: 20181010
  Serious: Yes (Hospitalization, Other)
  Sender: FDA-Public Use
  Company Number: IL-009507513-1807ISR002929

PATIENT
  Age: 55 Year
  Sex: Male

DRUGS (1)
  1. JANUET [Suspect]
     Active Substance: METFORMIN HYDROCHLORIDE\SITAGLIPTIN PHOSPHATE
     Indication: DIABETES MELLITUS
     Dosage: UNK
     Route: 048
     Dates: start: 201705

REACTIONS (2)
  - Diabetes mellitus inadequate control [Unknown]
  - Cardiac failure [Unknown]

NARRATIVE: CASE EVENT DATE: 2018
